FAERS Safety Report 6941331-0 (Version None)
Quarter: 2010Q3

REPORT INFORMATION
  Report Type: 
  Country: None (occurrence: None)
  Receive Date: 20100824
  Receipt Date: 20100824
  Transmission Date: 20110219
  Serious: Yes (Life-Threatening, Hospitalization, Other)
  Sender: FDA-Public Use
  Company Number: None

PATIENT
  Age: 58 Year
  Sex: Female
  Weight: 45.5 kg

DRUGS (3)
  1. EFFEXOR XR [Suspect]
     Indication: HOT FLUSH
     Dosage: 150 MG NIGHTLY ONCE EACH NIGHT ORAL
     Route: 048
     Dates: start: 20091201, end: 20100802
  2. EFFEXOR XR [Suspect]
     Indication: MENOPAUSE
     Dosage: 150 MG NIGHTLY ONCE EACH NIGHT ORAL
     Route: 048
     Dates: start: 20091201, end: 20100802
  3. EFFEXOR XR [Suspect]
     Indication: SLEEP DISORDER
     Dosage: 150 MG NIGHTLY ONCE EACH NIGHT ORAL
     Route: 048
     Dates: start: 20091201, end: 20100802

REACTIONS (3)
  - APNOEA [None]
  - ELECTROCARDIOGRAM ABNORMAL [None]
  - LOSS OF CONSCIOUSNESS [None]
